FAERS Safety Report 19944138 (Version 1)
Quarter: 2021Q4

REPORT INFORMATION
  Report Type: Spontaneous
  Country: US (occurrence: US)
  Receive Date: 20211007
  Receipt Date: 20211007
  Transmission Date: 20220303
  Serious: No
  Sender: FDA-Public Use
  Company Number: None

PATIENT
  Sex: Female

DRUGS (5)
  1. IBRANCE [Suspect]
     Active Substance: PALBOCICLIB
     Indication: Breast cancer female
     Dosage: 125MG QD X 21 DAYS PO
     Route: 048
  2. ADVIL [Concomitant]
     Active Substance: IBUPROFEN
  3. LETROZOLE [Concomitant]
     Active Substance: LETROZOLE
  4. VITAMINS [Concomitant]
     Active Substance: VITAMINS
  5. VITAMIN B12 ER [Concomitant]

REACTIONS (1)
  - Headache [None]
